FAERS Safety Report 8044585-5 (Version None)
Quarter: 2012Q1

REPORT INFORMATION
  Report Type: 
  Country: None (occurrence: None)
  Receive Date: 20120113
  Receipt Date: 20120113
  Transmission Date: 20120608
  Serious: Yes (Hospitalization)
  Sender: FDA-Public Use
  Company Number: None

PATIENT
  Age: 76 Year
  Sex: Female
  Weight: 45.812 kg

DRUGS (1)
  1. DOCETAXEL [Suspect]
     Indication: NON-SMALL CELL LUNG CANCER
     Dosage: 75 MG/M2
     Route: 042
     Dates: start: 20110506, end: 20110711

REACTIONS (4)
  - CAECITIS [None]
  - FEMALE GENITAL TRACT FISTULA [None]
  - DIVERTICULITIS [None]
  - ABSCESS [None]
